FAERS Safety Report 13784623 (Version 2)
Quarter: 2017Q4

REPORT INFORMATION
  Report Type: Spontaneous
  Country: US (occurrence: US)
  Receive Date: 20170724
  Receipt Date: 20171024
  Transmission Date: 20180320
  Serious: No
  Sender: FDA-Public Use
  Company Number: US-IMPAX LABORATORIES, INC-2017-IPXL-01365

PATIENT
  Age: 80 Year
  Sex: Male
  Weight: 77 kg

DRUGS (4)
  1. RYTARY [Suspect]
     Active Substance: CARBIDOPA\LEVODOPA
     Indication: PARKINSON^S DISEASE
     Dosage: 23.75/95 MG 2 CAPSULES, AT 6 MORNING+AT 12NOON DAILY
     Route: 048
     Dates: start: 20170504, end: 20170507
  2. CARBIDOPA-LEVODOPA ER [Suspect]
     Active Substance: CARBIDOPA\LEVODOPA
     Indication: PARKINSON^S DISEASE
     Dosage: 25/100MG, ONE AND HALF TABLET, 5 TIMES A DAY
     Route: 065
  3. GABAPENTIN. [Concomitant]
     Active Substance: GABAPENTIN
     Indication: RESTLESS LEGS SYNDROME
     Dosage: UNK, BEDTIME
     Route: 065
  4. AZILECT [Concomitant]
     Active Substance: RASAGILINE MESYLATE
     Indication: PARKINSON^S DISEASE
     Dosage: UNK
     Route: 065

REACTIONS (8)
  - Somnolence [Unknown]
  - Drug effect incomplete [Unknown]
  - Aphonia [Unknown]
  - Coordination abnormal [Unknown]
  - Dyskinesia [Unknown]
  - Therapeutic response shortened [Unknown]
  - Drug effect delayed [Unknown]
  - Asthenia [Unknown]
